FAERS Safety Report 6243478-3 (Version None)
Quarter: 2009Q2

REPORT INFORMATION
  Report Type: 
  Country: None (occurrence: None)
  Receive Date: 20090624
  Receipt Date: 20090615
  Transmission Date: 20091009
  Serious: Yes (Hospitalization, Other)
  Sender: FDA-Public Use
  Company Number: US-AVENTIS-200915260US

PATIENT
  Sex: Female

DRUGS (8)
  1. LOVENOX [Suspect]
     Indication: PROTEIN C DEFICIENCY
     Dates: start: 19990101
  2. LOVENOX [Suspect]
  3. LOVENOX [Suspect]
     Indication: PROTEIN S DEFICIENCY
     Dates: start: 19990101
  4. LOVENOX [Suspect]
  5. FORTEO [Suspect]
     Indication: OSTEOPOROSIS
     Dosage: DOSE: UNK
     Route: 051
  6. FORTEO [Suspect]
     Indication: BONE DENSITY DECREASED
     Dosage: DOSE: UNK
     Route: 051
  7. COUMADIN [Suspect]
     Dosage: DOSE: UNK
  8. PHENOBARBITAL TAB [Concomitant]
     Dosage: DOSE: UNK

REACTIONS (22)
  - ALOPECIA [None]
  - ATRIAL FIBRILLATION [None]
  - CIRCULATORY COLLAPSE [None]
  - DRUG INEFFECTIVE [None]
  - EPISTAXIS [None]
  - HAEMORRHAGE [None]
  - HEADACHE [None]
  - HEPATOMEGALY [None]
  - INJECTION SITE PAIN [None]
  - MOUTH HAEMORRHAGE [None]
  - NAUSEA [None]
  - OSTEOPOROSIS [None]
  - PANCREATIC ENLARGEMENT [None]
  - PULMONARY EMBOLISM [None]
  - PYREXIA [None]
  - RECTAL HAEMORRHAGE [None]
  - SKIN DISCOLOURATION [None]
  - SPLENOMEGALY [None]
  - THROMBOCYTOPENIA [None]
  - THROMBOSIS [None]
  - TOOTH DISORDER [None]
  - WEIGHT DECREASED [None]
